FAERS Safety Report 5186315-0 (Version None)
Quarter: 2006Q4

REPORT INFORMATION
  Report Type: 
  Country: None (occurrence: None)
  Receive Date: 20061220
  Receipt Date: 20061010
  Transmission Date: 20070319
  Serious: Yes (Death, Other)
  Sender: FDA-Public Use
  Company Number: FR-ELI_LILLY_AND_COMPANY-FR200610002232

PATIENT
  Age: 55 Year
  Sex: Female
  Weight: 79 kg

DRUGS (7)
  1. SPECIAFOLDINE [Concomitant]
     Indication: VITAMIN SUPPLEMENTATION
     Dosage: 5 MG, DAILY (1/D)
     Route: 048
     Dates: start: 20060501, end: 20060601
  2. FOLIC ACID [Concomitant]
     Indication: VITAMIN SUPPLEMENTATION
     Dosage: 0.4 MG, DAILY (1/D)
     Route: 048
     Dates: start: 20060601
  3. VITAMIN B-12 [Concomitant]
     Indication: VITAMIN SUPPLEMENTATION
     Dosage: 1 MG, OTHER
     Dates: start: 20060501
  4. GRANOCYTE ^RHONE-POULENC^ [Concomitant]
     Indication: PROPHYLAXIS
     Dates: start: 20060601
  5. ALIMTA [Suspect]
     Indication: NON-SMALL CELL LUNG CANCER
     Dosage: 915 MG, OTHER
     Route: 042
     Dates: start: 20060523
  6. ALIMTA [Suspect]
     Dosage: 915 MG, OTHER
     Route: 042
     Dates: start: 20060613
  7. ALIMTA [Suspect]
     Dosage: 915 MG, OTHER
     Route: 042
     Dates: start: 20060712

REACTIONS (6)
  - FEBRILE NEUTROPENIA [None]
  - PNEUMOCOCCAL SEPSIS [None]
  - PYREXIA [None]
  - SEPTIC SHOCK [None]
  - THROMBOCYTOPENIA [None]
  - THROMBOCYTOPENIC PURPURA [None]
